FAERS Safety Report 6235045-2 (Version None)
Quarter: 2009Q2

REPORT INFORMATION
  Report Type: 
  Country: None (occurrence: None)
  Receive Date: 20090614
  Receipt Date: 20071030
  Transmission Date: 20091009
  Serious: No
  Sender: FDA-Public Use
  Company Number: 268931

PATIENT
  Age: 58 Year
  Sex: Male

DRUGS (1)
  1. LEVEMIR [Suspect]
     Indication: INSULIN-REQUIRING TYPE 2 DIABETES MELLITUS
     Dates: start: 20070907, end: 20071004

REACTIONS (2)
  - INJECTION SITE INFECTION [None]
  - INJECTION SITE IRRITATION [None]
